FAERS Safety Report 4331928-9 (Version None)
Quarter: 2004Q2

REPORT INFORMATION
  Report Type: 
  Country: None (occurrence: None)
  Receive Date: 20040405
  Receipt Date: 20030507
  Transmission Date: 20050107
  Serious: No
  Sender: FDA-Public Use
  Company Number: US-GLAXOSMITHKLINE-A0407556A

PATIENT
  Age: 55 Year
  Sex: Female

DRUGS (4)
  1. SEREVENT [Suspect]
     Indication: ASTHMA
     Dosage: 2PUFF TWICE PER DAY
     Route: 055
  2. VENTOLIN [Concomitant]
     Route: 055
  3. SYNTHROID [Concomitant]
     Route: 065
  4. CLARITIN [Concomitant]
     Route: 065

REACTIONS (1)
  - THROAT TIGHTNESS [None]
